FAERS Safety Report 12643873 (Version 1)
Quarter: 2016Q3

REPORT INFORMATION
  Report Type: Spontaneous
  Country: GB (occurrence: GB)
  Receive Date: 20160811
  Receipt Date: 20160811
  Transmission Date: 20161109
  Serious: Yes (Hospitalization)
  Sender: FDA-Public Use
  Company Number: GB-CONCORDIA PHARMACEUTICALS INC.-GSH201608-003993

PATIENT
  Age: 94 Year
  Sex: Female
  Weight: 60 kg

DRUGS (8)
  1. DIGOXIN. [Suspect]
     Active Substance: DIGOXIN
     Indication: ATRIAL FIBRILLATION
     Route: 048
     Dates: start: 20160710, end: 20160720
  2. ATORVASTATIN [Concomitant]
     Active Substance: ATORVASTATIN
  3. FOLIC ACID. [Concomitant]
     Active Substance: FOLIC ACID
  4. QUININE [Concomitant]
     Active Substance: QUININE
     Dosage: HELD
  5. FERROUS FUMARATE [Concomitant]
     Active Substance: FERROUS FUMARATE
  6. DIGOXIN. [Suspect]
     Active Substance: DIGOXIN
     Indication: ATRIAL FIBRILLATION
     Dosage: LOADING DOSE
     Route: 048
  7. PREGABALIN. [Concomitant]
     Active Substance: PREGABALIN
  8. BUMETANIDE. [Suspect]
     Active Substance: BUMETANIDE
     Dosage: DOSE INCREASED ON THIS DATE
     Dates: start: 20160710

REACTIONS (5)
  - Toxicity to various agents [Recovering/Resolving]
  - Bradycardia [Unknown]
  - Confusional state [Unknown]
  - Incorrect dose administered [Unknown]
  - Acute kidney injury [Unknown]

NARRATIVE: CASE EVENT DATE: 20160720
